FAERS Safety Report 16744916 (Version 1)
Quarter: 2019Q3

REPORT INFORMATION
  Report Type: Spontaneous
  Country: US (occurrence: US)
  Receive Date: 20190813
  Receipt Date: 20190813
  Transmission Date: 20191005
  Serious: No
  Sender: FDA-Public Use
  Company Number: None

PATIENT

DRUGS (2)
  1. STERILE WATER FOR INJECTION [Suspect]
     Active Substance: WATER
     Dosage: IV GAG
     Route: 042
  2. HEPARIN SOD SOLUTION 1,000 UNITS/500ML [Suspect]
     Active Substance: HEPARIN SODIUM
     Dosage: IV BAG
     Route: 042

REACTIONS (3)
  - Product storage error [None]
  - Product packaging confusion [None]
  - Intercepted product administration error [None]

NARRATIVE: CASE EVENT DATE: 2019
